FAERS Safety Report 17744895 (Version 2)
Quarter: 2020Q2

REPORT INFORMATION
  Report Type: Spontaneous
  Country: US (occurrence: US)
  Receive Date: 20200505
  Receipt Date: 20200512
  Transmission Date: 20200714
  Serious: No
  Sender: FDA-Public Use
  Company Number: US-PFIZER INC-2020179485

PATIENT
  Age: 40 Year
  Sex: Female

DRUGS (1)
  1. IBRANCE [Suspect]
     Active Substance: PALBOCICLIB
     Indication: BREAST CANCER FEMALE
     Dosage: 75 MG, 1 CAPSULE (75 MG TOTAL) AS DIRECTED FOR 14 DAYS IN A ROW THEN TAKE A 7 DAYS BREAK
     Route: 048
     Dates: start: 201910

REACTIONS (3)
  - Product use issue [Unknown]
  - Malaise [Unknown]
  - Off label use [Unknown]
